FAERS Safety Report 20795407 (Version 1)
Quarter: 2022Q2

REPORT INFORMATION
  Report Type: Spontaneous
  Country: RO (occurrence: RO)
  Receive Date: 20220506
  Receipt Date: 20220506
  Transmission Date: 20220721
  Serious: Yes (Other)
  Sender: FDA-Public Use
  Company Number: RO-PFIZER INC-202200632227

PATIENT
  Age: 72 Year
  Sex: Female

DRUGS (1)
  1. SUNITINIB MALATE [Suspect]
     Active Substance: SUNITINIB MALATE
     Indication: Metastatic renal cell carcinoma
     Dosage: 50 MG, CYCLIC (4 WEEKS ON/2 WEEKS OFF)
     Dates: start: 2020

REACTIONS (4)
  - Cellulitis [Recovered/Resolved]
  - Mastitis [Recovered/Resolved]
  - Breast swelling [Recovered/Resolved]
  - Neoplasm progression [Unknown]
